FAERS Safety Report 6504720-4 (Version None)
Quarter: 2009Q4

REPORT INFORMATION
  Report Type: 
  Country: None (occurrence: None)
  Receive Date: 20091218
  Receipt Date: 20090108
  Transmission Date: 20100525
  Serious: No
  Sender: FDA-Public Use
  Company Number: A0738640A

PATIENT
  Age: 36 Year
  Sex: Male

DRUGS (3)
  1. TRIZIVIR [Suspect]
     Indication: HIV INFECTION
     Dosage: 1TAB TWICE PER DAY
     Route: 048
  2. OXANDROLONE [Suspect]
     Route: 048
     Dates: start: 20080521, end: 20080910
  3. OTHER MEDICATIONS [Concomitant]

REACTIONS (2)
  - BLOOD PRESSURE INCREASED [None]
  - RASH [None]
